FAERS Safety Report 24165038 (Version 1)
Quarter: 2024Q3

REPORT INFORMATION
  Report Type: Spontaneous
  Country: US (occurrence: US)
  Receive Date: 20240802
  Receipt Date: 20240802
  Transmission Date: 20241017
  Serious: Yes (Death, Other)
  Sender: SOLARIS PHARMA
  Company Number: US-SPC-000466

PATIENT
  Sex: Female

DRUGS (3)
  1. CLINDAMYCIN [Suspect]
     Active Substance: CLINDAMYCIN
     Indication: Muscle necrosis
     Route: 065
  2. VANCOMYCIN [Suspect]
     Active Substance: VANCOMYCIN
     Indication: Muscle necrosis
     Route: 065
  3. PIPERACILLIN AND TAZOBACTAM [Suspect]
     Active Substance: PIPERACILLIN SODIUM\TAZOBACTAM SODIUM
     Indication: Muscle necrosis
     Route: 065

REACTIONS (4)
  - Condition aggravated [Unknown]
  - Toxic shock syndrome [Fatal]
  - Muscle necrosis [Unknown]
  - Product use in unapproved indication [Unknown]
